FAERS Safety Report 15160381 (Version 1)
Quarter: 2018Q3

REPORT INFORMATION
  Report Type: Report from Study
  Country: BR (occurrence: BR)
  Receive Date: 20180718
  Receipt Date: 20180718
  Transmission Date: 20181010
  Serious: Yes (Hospitalization)
  Sender: FDA-Public Use
  Company Number: PHHY2018BR047223

PATIENT
  Age: 94 Year
  Sex: Female
  Weight: 41 kg

DRUGS (1)
  1. ACLASTA [Suspect]
     Active Substance: ZOLEDRONIC ACID
     Indication: OSTEOPOROSIS
     Dosage: UNK
     Route: 042
     Dates: start: 2016

REACTIONS (6)
  - Influenza [Unknown]
  - Incorrect route of drug administration [Unknown]
  - Nervousness [Unknown]
  - Electrocardiogram abnormal [Unknown]
  - Chest pain [Recovered/Resolved]
  - Hypertension [Unknown]

NARRATIVE: CASE EVENT DATE: 20180614
